FAERS Safety Report 9642053 (Version 1)
Quarter: 2013Q4

REPORT INFORMATION
  Report Type: Spontaneous
  Country: CA (occurrence: CA)
  Receive Date: 20131023
  Receipt Date: 20131023
  Transmission Date: 20140711
  Serious: Yes (Other)
  Sender: FDA-Public Use
  Company Number: CA-ROCHE-1290749

PATIENT
  Age: 44 Year
  Sex: Female

DRUGS (6)
  1. RIVOTRIL [Suspect]
     Indication: PRODUCT USED FOR UNKNOWN INDICATION
     Route: 065
  2. CIPRALEX [Suspect]
     Indication: PRODUCT USED FOR UNKNOWN INDICATION
     Route: 065
  3. CIPRALEX [Suspect]
     Route: 065
  4. CIPRALEX [Suspect]
     Route: 065
  5. CIPRALEX [Suspect]
     Route: 065
  6. OMEGA-3 [Suspect]
     Indication: PRODUCT USED FOR UNKNOWN INDICATION
     Route: 065

REACTIONS (1)
  - Ecchymosis [Not Recovered/Not Resolved]
